FAERS Safety Report 12797592 (Version 1)
Quarter: 2016Q3

REPORT INFORMATION
  Report Type: Report from Study
  Country: US (occurrence: US)
  Receive Date: 20160930
  Receipt Date: 20160930
  Transmission Date: 20161109
  Serious: Yes (Other)
  Sender: FDA-Public Use
  Company Number: US-AMGEN-USASL2016133724

PATIENT

DRUGS (1)
  1. KYPROLIS [Suspect]
     Active Substance: CARFILZOMIB
     Indication: PRODUCT USED FOR UNKNOWN INDICATION
     Dosage: UNK
     Route: 065

REACTIONS (16)
  - Hypocalcaemia [Unknown]
  - Agranulocytosis [Unknown]
  - Cancer pain [Unknown]
  - Pyrexia [Unknown]
  - Hypercalcaemia [Unknown]
  - Cardiac failure [Unknown]
  - Renal disorder [Unknown]
  - Hypomagnesaemia [Unknown]
  - Insomnia [Unknown]
  - Ureteral disorder [Unknown]
  - Pancytopenia [Unknown]
  - Anaemia [Unknown]
  - Hypogammaglobulinaemia [Unknown]
  - Neck pain [Unknown]
  - Epistaxis [Unknown]
  - Dehydration [Unknown]

NARRATIVE: CASE EVENT DATE: 20140407
